FAERS Safety Report 6839779-8 (Version None)
Quarter: 2010Q3

REPORT INFORMATION
  Report Type: 
  Country: None (occurrence: None)
  Receive Date: 20100714
  Receipt Date: 20100706
  Transmission Date: 20110219
  Serious: Yes (Hospitalization)
  Sender: FDA-Public Use
  Company Number: JP-PFIZER INC-2010084358

PATIENT
  Age: 60 Year
  Sex: Male
  Weight: 61 kg

DRUGS (20)
  1. SUNITINIB MALATE [Suspect]
     Indication: RENAL CELL CARCINOMA
     Dosage: 50 MG, 1X/DAY
     Route: 048
     Dates: start: 20090723, end: 20091214
  2. HALCION [Concomitant]
     Dosage: 0.25 MG, 1X/DAY
     Route: 048
     Dates: end: 20090723
  3. MYSLEE [Concomitant]
     Dosage: 10 MG, 1X/DAY
     Route: 048
     Dates: start: 20090724
  4. SILECE [Concomitant]
     Dosage: 1 MG, 1X/DAY
     Route: 048
     Dates: start: 20090724, end: 20090727
  5. KAKKON-TO [Concomitant]
     Dosage: 2.5 G, 3X/DAY
     Route: 048
     Dates: start: 20090727, end: 20090730
  6. METHYL SALICYLATE [Concomitant]
     Dosage: UNK
     Dates: start: 20090730
  7. HOCHUUEKKITOU [Concomitant]
     Dosage: 2.5 G, 3X/DAY
     Dates: start: 20090803, end: 20090823
  8. LOXONIN [Concomitant]
     Dosage: 1 DF, 2X/DAY
     Route: 048
     Dates: start: 20090811, end: 20090817
  9. LOPEMIN [Concomitant]
     Dosage: 1 DF, 2X/DAY
     Route: 048
     Dates: start: 20090808
  10. POSTERISAN FORTE [Concomitant]
     Dosage: 2 G, 1X/DAY
     Dates: start: 20090808, end: 20090815
  11. VITAMEDIN CAPSULE [Concomitant]
     Dosage: 1 DF, 2X/DAY
     Route: 048
     Dates: start: 20090813
  12. RINDERON [Concomitant]
     Dosage: UNK
     Dates: start: 20090817
  13. GASTER [Concomitant]
     Dosage: 20 MG, 2X/DAY
     Route: 048
     Dates: start: 20090813, end: 20090908
  14. HANGE-SHASHIN-TO [Concomitant]
     Dosage: 2.5 G, 3X/DAY
     Route: 048
     Dates: start: 20090814, end: 20090827
  15. ZOSYN [Concomitant]
     Dosage: 4.5 G, 3X/DAY
     Route: 042
     Dates: start: 20090806, end: 20090811
  16. NORVASC [Concomitant]
     Dosage: 5 MG, 1X/DAY
     Route: 048
  17. TANATRIL ^ALGOL^ [Concomitant]
     Dosage: 2.5 MG, 1X/DAY
     Route: 048
  18. ZYLORIC ^FAES^ [Concomitant]
     Dosage: 100 MG, 2X/DAY
     Route: 048
  19. URSO 250 [Concomitant]
     Dosage: 100 MG, 3X/DAY
     Route: 048
     Dates: start: 20090821
  20. GOREI-SAN [Concomitant]
     Dosage: 2.5 G, 3X/DAY
     Route: 048
     Dates: start: 20090828, end: 20090918

REACTIONS (1)
  - PNEUMONIA [None]
